FAERS Safety Report 12729794 (Version 2)
Quarter: 2016Q3

REPORT INFORMATION
  Report Type: Spontaneous
  Country: US (occurrence: US)
  Receive Date: 20160909
  Receipt Date: 20160928
  Transmission Date: 20161109
  Serious: No
  Sender: FDA-Public Use
  Company Number: US-PFIZER INC-2016420171

PATIENT
  Age: 53 Year
  Sex: Male
  Weight: 86 kg

DRUGS (3)
  1. ADVIL [Suspect]
     Active Substance: IBUPROFEN
     Indication: INFLAMMATION
     Dosage: 200 MG, UNK (1 200MG TABLETS DURING A FLIGHT WITH FOOD)
     Route: 048
     Dates: start: 201201, end: 201607
  2. ADVIL [Suspect]
     Active Substance: IBUPROFEN
     Indication: NASAL CONGESTION
  3. ADVIL [Suspect]
     Active Substance: IBUPROFEN
     Indication: HYPOBARISM
     Dosage: 400 MG, UNK (2 200MG TABLETS DURING A FLIGHT WITH FOOD)
     Route: 048
     Dates: start: 201201, end: 201607

REACTIONS (4)
  - Sneezing [Recovered/Resolved]
  - Rhinorrhoea [Recovered/Resolved]
  - Hypersensitivity [Unknown]
  - Drug ineffective for unapproved indication [Unknown]

NARRATIVE: CASE EVENT DATE: 201602
